FAERS Safety Report 5865106-9 (Version None)
Quarter: 2008Q3

REPORT INFORMATION
  Report Type: 
  Country: None (occurrence: None)
  Receive Date: 20080829
  Receipt Date: 20080825
  Transmission Date: 20090109
  Serious: Yes (Hospitalization)
  Sender: FDA-Public Use
  Company Number: A0744117A

PATIENT
  Age: 70 Year
  Sex: Female

DRUGS (4)
  1. LAMICTAL [Suspect]
     Indication: BIPOLAR DISORDER
     Dosage: 200MG PER DAY
     Route: 048
     Dates: start: 20060101
  2. ANTIHYPERTENSIVE [Concomitant]
  3. SEROQUEL [Concomitant]
  4. STOOL SOFTENER [Concomitant]

REACTIONS (2)
  - HIP FRACTURE [None]
  - SURGERY [None]
